FAERS Safety Report 13821507 (Version 1)
Quarter: 2017Q3

REPORT INFORMATION
  Report Type: Spontaneous
  Country: PL (occurrence: PL)
  Receive Date: 20170801
  Receipt Date: 20170801
  Transmission Date: 20171127
  Serious: Yes (Hospitalization, Other)
  Sender: FDA-Public Use
  Company Number: PL-BIO-PHARM, INC -2024016

PATIENT
  Age: 19 Year
  Sex: Male

DRUGS (1)
  1. HCBT + CPM + PSE ORAL SOLUTION [Suspect]
     Active Substance: CHLORPHENIRAMINE MALEATE\HYDROCODONE BITARTRATE\PSEUDOEPHEDRINE HYDROCHLORIDE

REACTIONS (1)
  - HIV-associated neurocognitive disorder [Unknown]
